FAERS Safety Report 23260934 (Version 2)
Quarter: 2023Q4

REPORT INFORMATION
  Report Type: Spontaneous
  Country: US (occurrence: US)
  Receive Date: 20231205
  Receipt Date: 20231227
  Transmission Date: 20240109
  Serious: No
  Sender: FDA-Public Use
  Company Number: US-JNJFOC-20231179503

PATIENT
  Age: 74 Year
  Sex: Female

DRUGS (1)
  1. OPSUMIT [Suspect]
     Active Substance: MACITENTAN
     Indication: Product used for unknown indication
     Route: 048

REACTIONS (3)
  - Constipation [Unknown]
  - Paraesthesia [Unknown]
  - Alopecia [Unknown]

NARRATIVE: CASE EVENT DATE: 20231127
